FAERS Safety Report 6581444-9 (Version None)
Quarter: 2010Q1

REPORT INFORMATION
  Report Type: 
  Country: None (occurrence: None)
  Receive Date: 20100215
  Receipt Date: 20100209
  Transmission Date: 20100710
  Serious: Yes (Death, Hospitalization)
  Sender: FDA-Public Use
  Company Number: A0843768A

PATIENT
  Age: 31 Year
  Sex: Female

DRUGS (2)
  1. PAXIL [Suspect]
     Indication: DEPRESSION
     Route: 048
     Dates: start: 20080401, end: 20100101
  2. YAZ [Concomitant]

REACTIONS (5)
  - ADVERSE EVENT [None]
  - COMPLETED SUICIDE [None]
  - DEPRESSED MOOD [None]
  - HEADACHE [None]
  - MIGRAINE [None]
